FAERS Safety Report 14774899 (Version 1)
Quarter: 2018Q2

REPORT INFORMATION
  Report Type: Spontaneous
  Country: US (occurrence: US)
  Receive Date: 20180418
  Receipt Date: 20180418
  Transmission Date: 20180711
  Serious: Yes (Other)
  Sender: FDA-Public Use
  Company Number: US-DRREDDYS-USA/USA/18/0097777

PATIENT
  Age: 21 Year
  Sex: Male
  Weight: 45.45 kg

DRUGS (2)
  1. FETZIMA [Concomitant]
     Active Substance: LEVOMILNACIPRAN HYDROCHLORIDE
     Indication: DEPRESSION
  2. CETIRIZINE [Suspect]
     Active Substance: CETIRIZINE HYDROCHLORIDE
     Indication: PRODUCT USED FOR UNKNOWN INDICATION
     Route: 048
     Dates: start: 20180404

REACTIONS (5)
  - Fall [Unknown]
  - Dizziness [Unknown]
  - Gait inability [Unknown]
  - Feeling abnormal [Unknown]
  - Dysstasia [Unknown]

NARRATIVE: CASE EVENT DATE: 20180406
